FAERS Safety Report 4296469-6 (Version None)
Quarter: 2004Q1

REPORT INFORMATION
  Report Type: 
  Country: None (occurrence: None)
  Receive Date: 20040217
  Receipt Date: 20011016
  Transmission Date: 20041129
  Serious: Yes (Other)
  Sender: FDA-Public Use
  Company Number: 11036381

PATIENT
  Age: 31 Year
  Sex: Female

DRUGS (6)
  1. STADOL [Suspect]
     Route: 045
     Dates: start: 19970101
  2. ULTRAM [Concomitant]
  3. PROPRANOLOL [Concomitant]
  4. ALPRAZOLAM [Concomitant]
  5. PROPOXYPHENE HCL+APAP+CAFFEINE [Concomitant]
  6. PROMETHAZINE [Concomitant]

REACTIONS (10)
  - ANXIETY [None]
  - DEPENDENCE [None]
  - DRUG WITHDRAWAL SYNDROME [None]
  - INSOMNIA [None]
  - MYALGIA [None]
  - MYDRIASIS [None]
  - NAUSEA [None]
  - RENAL IMPAIRMENT [None]
  - RENAL INJURY [None]
  - VOMITING [None]
